FAERS Safety Report 12060982 (Version 1)
Quarter: 2016Q1

REPORT INFORMATION
  Report Type: Spontaneous
  Country: US (occurrence: US)
  Receive Date: 20160210
  Receipt Date: 20160210
  Transmission Date: 20160526
  Serious: Yes (Hospitalization)
  Sender: FDA-Public Use
  Company Number: US-BAYER-2016-021127

PATIENT
  Age: 69 Year
  Sex: Female

DRUGS (1)
  1. BAYER LOW DOSE [Suspect]
     Active Substance: ASPIRIN
     Dosage: 1 DF, ONCE
     Route: 048

REACTIONS (5)
  - Abdominal pain [Recovered/Resolved]
  - Drug hypersensitivity [None]
  - Dyspnoea [Recovered/Resolved]
  - Asthma [Recovered/Resolved]
  - Drug hypersensitivity [Not Recovered/Not Resolved]
